FAERS Safety Report 7032434-3 (Version None)
Quarter: 2010Q4

REPORT INFORMATION
  Report Type: 
  Country: None (occurrence: None)
  Receive Date: 20101001
  Receipt Date: 20100922
  Transmission Date: 20110411
  Serious: Yes (Life-Threatening)
  Sender: FDA-Public Use
  Company Number: APP201000781

PATIENT
  Age: 57 Year
  Sex: Male
  Weight: 72.6 kg

DRUGS (1)
  1. HEPARIN SODIUM INJECTION [Suspect]
     Indication: DIALYSIS
     Dosage: 2000 U IV BOLUS, INTRAVENOUS BOLUS
     Route: 040
     Dates: start: 20100902, end: 20100902

REACTIONS (3)
  - CARDIO-RESPIRATORY ARREST [None]
  - PROCEDURAL COMPLICATION [None]
  - UNRESPONSIVE TO STIMULI [None]
